FAERS Safety Report 25007407 (Version 1)
Quarter: 2025Q1

REPORT INFORMATION
  Report Type: Spontaneous
  Country: US (occurrence: US)
  Receive Date: 20250225
  Receipt Date: 20250225
  Transmission Date: 20250409
  Serious: No
  Sender: ALEXION PHARMACEUTICALS
  Company Number: US-AstraZeneca-CH-00814053A

PATIENT

DRUGS (1)
  1. FASENRA [Suspect]
     Active Substance: BENRALIZUMAB
     Route: 065

REACTIONS (5)
  - Wheezing [Unknown]
  - Eosinophil count [Unknown]
  - Eosinophils urine [Unknown]
  - Product dose omission issue [Unknown]
  - Therapeutic response shortened [Unknown]
